FAERS Safety Report 9671396 (Version 2)
Quarter: 2013Q4

REPORT INFORMATION
  Report Type: Spontaneous
  Country: PT (occurrence: PT)
  Receive Date: 20131106
  Receipt Date: 20131212
  Transmission Date: 20140711
  Serious: Yes (Other)
  Sender: FDA-Public Use
  Company Number: PT-TEVA-441703ISR

PATIENT
  Age: 74 Year
  Sex: 0

DRUGS (2)
  1. SIMVASTATIN [Suspect]
  2. LOSARTAN/HYDROCHLOROTHIAZIDE [Concomitant]

REACTIONS (1)
  - Systemic lupus erythematosus [Recovered/Resolved]
